FAERS Safety Report 9693410 (Version 2)
Quarter: 2013Q4

REPORT INFORMATION
  Report Type: Report from Study
  Country: JP (occurrence: JP)
  Receive Date: 20131118
  Receipt Date: 20131230
  Transmission Date: 20140711
  Serious: Yes (Death, Hospitalization, Other)
  Sender: FDA-Public Use
  Company Number: JP-TAKEDA-2013TJP002826

PATIENT
  Age: 72 Year
  Sex: Male
  Weight: 50 kg

DRUGS (15)
  1. LANSOPRAZOLE [Suspect]
     Indication: PROPHYLAXIS AGAINST GASTROINTESTINAL ULCER
     Dosage: 15 MG, QD
     Route: 048
     Dates: start: 20120912, end: 20121025
  2. CELECOX [Concomitant]
     Indication: CANCER PAIN
     Dosage: 200 MG,1 DAYS
     Route: 048
     Dates: start: 20120910
  3. LOXOPROFEN SODIUM [Concomitant]
     Indication: CANCER PAIN
     Dosage: 60 MG, 1 DAY
     Route: 048
     Dates: start: 20120911, end: 20121025
  4. OXYCONTIN [Concomitant]
     Indication: CANCER PAIN
     Dosage: 10 MG,1  DAYS
     Route: 048
     Dates: start: 20120918, end: 20120926
  5. OXYCONTIN [Concomitant]
     Dosage: 30 MG, 1 DAYS
     Route: 048
     Dates: start: 20120927, end: 20121002
  6. OXYCONTIN [Concomitant]
     Dosage: 50 MG, 1 DAYS
     Route: 048
     Dates: start: 20121003
  7. OXINORM                            /00045603/ [Concomitant]
     Indication: CANCER PAIN
     Dosage: 2.5 MG,1 DAYS
     Route: 048
     Dates: start: 20120918
  8. NOVAMIN                            /00013304/ [Concomitant]
     Dosage: 15 MG,1 DAYS
     Route: 048
     Dates: start: 20120918
  9. MAGLAX [Concomitant]
     Dosage: 990 MG, 1 DAYS
     Route: 048
     Dates: start: 20120920
  10. FENTOS [Concomitant]
     Indication: CANCER PAIN
     Dosage: 2 MG, 1 DAYS
     Route: 062
     Dates: start: 20121010, end: 20121010
  11. FENTOS [Concomitant]
     Dosage: 4 MG,1 DAYS
     Route: 062
     Dates: start: 20121011, end: 20121025
  12. FENTOS [Concomitant]
     Route: 062
     Dates: start: 20121011
  13. PRIMPERAN [Concomitant]
     Dosage: 15 MG, 1 DAYS
     Route: 048
     Dates: start: 20121004
  14. PURSENNID                          /00571902/ [Concomitant]
     Dosage: 24 MG, 1 DAYS
     Route: 048
     Dates: start: 20121001
  15. PYRETHIA                           /00033002/ [Concomitant]
     Dosage: 50 MG, 1 DAYS
     Route: 048
     Dates: start: 20121012

REACTIONS (2)
  - Pancreatic carcinoma [Fatal]
  - Condition aggravated [Fatal]
